FAERS Safety Report 12374438 (Version 1)
Quarter: 2016Q2

REPORT INFORMATION
  Report Type: Spontaneous
  Country: US (occurrence: None)
  Receive Date: 20160516
  Receipt Date: 20160516
  Transmission Date: 20160815
  Serious: No
  Sender: FDA-Public Use
  Company Number: None

PATIENT
  Age: 66 Year
  Sex: Male

DRUGS (6)
  1. GLATOPA [Suspect]
     Active Substance: GLATIRAMER ACETATE
     Indication: MULTIPLE SCLEROSIS
     Route: 058
     Dates: start: 20160331
  2. OXYCODONE [Concomitant]
     Active Substance: OXYCODONE
  3. ASPIRIN. [Concomitant]
     Active Substance: ASPIRIN
  4. OMEGA-3 ACIDS [Concomitant]
     Active Substance: OMEGA-3 FATTY ACIDS
  5. PREVAGEN [Concomitant]
     Active Substance: DIETARY SUPPLEMENT
  6. METFORMIN [Concomitant]
     Active Substance: METFORMIN HYDROCHLORIDE

REACTIONS (4)
  - Injection site vesicles [None]
  - Influenza like illness [None]
  - Pruritus [None]
  - Rash [None]

NARRATIVE: CASE EVENT DATE: 201605
